FAERS Safety Report 4395502-0 (Version None)
Quarter: 2004Q3

REPORT INFORMATION
  Report Type: 
  Country: None (occurrence: None)
  Receive Date: 20040709
  Receipt Date: 20040628
  Transmission Date: 20050211
  Serious: Yes (Hospitalization)
  Sender: FDA-Public Use
  Company Number: 2004043414

PATIENT
  Sex: Female

DRUGS (4)
  1. PROCARDIA [Suspect]
     Indication: ILL-DEFINED DISORDER
  2. PANTOPRAZOLE (PANTOPRAZOLE) [Concomitant]
  3. ALENDRONATE SODIUM [Concomitant]
  4. ALL OTHER THERAPEUTIC PRODUCTS (ALL OTHER THERAPEUTIC PRODUCTS) [Concomitant]

REACTIONS (1)
  - GASTRIC HAEMORRHAGE [None]
